FAERS Safety Report 4830545-1 (Version None)
Quarter: 2005Q4

REPORT INFORMATION
  Report Type: 
  Country: None (occurrence: None)
  Receive Date: 20051115
  Receipt Date: 20051102
  Transmission Date: 20060501
  Serious: Yes (Hospitalization)
  Sender: FDA-Public Use
  Company Number: 2005BI018128

PATIENT
  Age: 47 Year
  Sex: Female

DRUGS (5)
  1. AVONEX [Suspect]
     Indication: MULTIPLE SCLEROSIS
     Dosage: 30 UG QW; IM
     Route: 030
     Dates: start: 20031124
  2. ZOLOFT [Concomitant]
  3. ELAVIL [Concomitant]
  4. KLONOPIN [Concomitant]
  5. ZANTAC [Concomitant]

REACTIONS (6)
  - CONDITION AGGRAVATED [None]
  - ECCHYMOSIS [None]
  - HEPATIC STEATOSIS [None]
  - HEPATOMEGALY [None]
  - MULTIPLE SCLEROSIS [None]
  - SWELLING [None]
